FAERS Safety Report 9423306 (Version 3)
Quarter: 2013Q4

REPORT INFORMATION
  Report Type: Spontaneous
  Country: US (occurrence: US)
  Receive Date: 20130726
  Receipt Date: 20131014
  Transmission Date: 20140711
  Serious: No
  Sender: FDA-Public Use
  Company Number: US-PFIZER INC-2013218881

PATIENT
  Age: 71 Year
  Sex: Male
  Weight: 82.54 kg

DRUGS (1)
  1. METHYLPREDNISOLONE [Suspect]
     Indication: BACK PAIN
     Dosage: 4 MG, 5X/DAY
     Route: 048
     Dates: start: 20130711, end: 20130715

REACTIONS (1)
  - Drug ineffective [Unknown]
